FAERS Safety Report 5942200-5 (Version None)
Quarter: 2008Q4

REPORT INFORMATION
  Report Type: 
  Country: None (occurrence: None)
  Receive Date: 20081104
  Receipt Date: 20081104
  Transmission Date: 20090506
  Serious: Yes (Hospitalization)
  Sender: FDA-Public Use
  Company Number: None

PATIENT
  Sex: Female
  Weight: 55 kg

DRUGS (2)
  1. CYCLOPHOSPHAMIDE [Suspect]
     Dosage: 990 MG
  2. DOXORUBICIN HYDROCHLORIDE [Suspect]
     Dosage: 99 MG

REACTIONS (14)
  - AGGRESSION [None]
  - BLISTER [None]
  - BLOOD CREATININE INCREASED [None]
  - CELLULITIS [None]
  - COGNITIVE DISORDER [None]
  - CONFUSIONAL STATE [None]
  - HAEMOGLOBIN DECREASED [None]
  - HALLUCINATION, VISUAL [None]
  - HYPOPHAGIA [None]
  - HYPOTENSION [None]
  - MENTAL DISORDER [None]
  - PAIN [None]
  - PAIN IN EXTREMITY [None]
  - TACHYCARDIA [None]
